FAERS Safety Report 15301586 (Version 1)
Quarter: 2018Q3

REPORT INFORMATION
  Report Type: Report from Study
  Country: None (occurrence: US)
  Receive Date: 20180821
  Receipt Date: 20180821
  Transmission Date: 20181010
  Serious: Yes (Hospitalization, Other)
  Sender: FDA-Public Use
  Company Number: US-ABBVIE-17K-163-1985152-00

PATIENT
  Sex: Male

DRUGS (1)
  1. HUMIRA [Suspect]
     Active Substance: ADALIMUMAB
     Indication: COLITIS ULCERATIVE
     Route: 058
     Dates: end: 201712

REACTIONS (7)
  - Peripheral artery occlusion [Not Recovered/Not Resolved]
  - Joint injury [Recovering/Resolving]
  - Colitis ulcerative [Unknown]
  - Fatigue [Recovering/Resolving]
  - Scratch [Recovered/Resolved]
  - Fall [Recovering/Resolving]
  - Fall [Recovered/Resolved]

NARRATIVE: CASE EVENT DATE: 2017
